FAERS Safety Report 17134826 (Version 2)
Quarter: 2023Q4

REPORT INFORMATION
  Report Type: Report from Study
  Country: US (occurrence: US)
  Receive Date: 20191210
  Receipt Date: 20231215
  Transmission Date: 20240109
  Serious: No
  Sender: FDA-Public Use
  Company Number: US-KYOWAKIRIN-2019BKK019297

PATIENT

DRUGS (2)
  1. BUROSUMAB [Suspect]
     Active Substance: BUROSUMAB
     Indication: Product used for unknown indication
     Dosage: UNK, 1X/4 WEEKS
     Route: 065
  2. BUROSUMAB [Suspect]
     Active Substance: BUROSUMAB
     Dosage: UNK
     Route: 065

REACTIONS (2)
  - Abdominal pain upper [Unknown]
  - Back pain [Unknown]
